FAERS Safety Report 13462992 (Version 1)
Quarter: 2017Q2

REPORT INFORMATION
  Report Type: Spontaneous
  Country: US (occurrence: US)
  Receive Date: 20170420
  Receipt Date: 20170420
  Transmission Date: 20170830
  Serious: Yes (Hospitalization, Other)
  Sender: FDA-Public Use
  Company Number: US-JNJFOC-20170415236

PATIENT
  Age: 70 Year
  Sex: Female
  Weight: 66.23 kg

DRUGS (2)
  1. LOSARTAN. [Concomitant]
     Active Substance: LOSARTAN
     Route: 065
  2. REMICADE [Suspect]
     Active Substance: INFLIXIMAB
     Indication: CROHN^S DISEASE
     Route: 042
     Dates: start: 201401

REACTIONS (8)
  - Post procedural haemorrhage [Unknown]
  - Deep vein thrombosis [Unknown]
  - Hyperhidrosis [Recovered/Resolved]
  - Product use issue [Unknown]
  - Peripheral vascular disorder [Not Recovered/Not Resolved]
  - Off label use [Unknown]
  - Device occlusion [Unknown]
  - Parosmia [Recovered/Resolved]

NARRATIVE: CASE EVENT DATE: 201401
